FAERS Safety Report 8600144-4 (Version None)
Quarter: 2012Q3

REPORT INFORMATION
  Report Type: 
  Country: None (occurrence: None)
  Receive Date: 20120817
  Receipt Date: 20120809
  Transmission Date: 20120928
  Serious: Yes (Other)
  Sender: FDA-Public Use
  Company Number: BR-AMGEN-BRASP2012051468

PATIENT
  Age: 48 Year
  Sex: Female
  Weight: 72 kg

DRUGS (5)
  1. FUROSEMIDE [Concomitant]
     Dosage: 40 MG, 1X/DAY
  2. MUSCULARE [Concomitant]
     Dosage: 10 MG, 2X/DAY
  3. ENBREL [Suspect]
     Indication: RHEUMATOID ARTHRITIS
     Dosage: 50 MG, ONCE WEEKLY
     Route: 058
     Dates: start: 20120714
  4. PREDNISONE TAB [Concomitant]
     Dosage: 5 MG, 1X/DAY
  5. OMEPRAZOLE [Concomitant]
     Dosage: 20 MG, 1X/DAY

REACTIONS (4)
  - INJECTION SITE MASS [None]
  - INJECTION SITE ERYTHEMA [None]
  - INJECTION SITE PRURITUS [None]
  - HYPERTENSION [None]
